FAERS Safety Report 8000410-X (Version None)
Quarter: 2011Q4

REPORT INFORMATION
  Report Type: 
  Country: None (occurrence: None)
  Receive Date: 20111222
  Receipt Date: 20101202
  Transmission Date: 20120403
  Serious: No
  Sender: FDA-Public Use
  Company Number: US-BRISTOL-MYERS SQUIBB COMPANY-15419393

PATIENT
  Sex: Female

DRUGS (2)
  1. VYTORIN [Suspect]
  2. PRAVACHOL [Suspect]
     Dosage: FOR 18 MONTHS

REACTIONS (2)
  - DRUG INEFFECTIVE [None]
  - BLOOD CALCIUM INCREASED [None]
